FAERS Safety Report 4371983-3 (Version None)
Quarter: 2004Q2

REPORT INFORMATION
  Report Type: 
  Country: None (occurrence: None)
  Receive Date: 20040603
  Receipt Date: 20040603
  Transmission Date: 20050107
  Serious: Yes (Other)
  Sender: FDA-Public Use
  Company Number: None

PATIENT
  Age: 27 Year
  Sex: Female
  Weight: 81.1939 kg

DRUGS (1)
  1. ORTHO TRICLYCLEN LO [Suspect]
     Indication: CONTRACEPTION
     Dosage: 1 PILL DAILY ORAL
     Route: 048

REACTIONS (2)
  - DRUG INEFFECTIVE [None]
  - PREGNANCY ON ORAL CONTRACEPTIVE [None]
